FAERS Safety Report 21219193 (Version 1)
Quarter: 2022Q3

REPORT INFORMATION
  Report Type: Spontaneous
  Country: IL (occurrence: IL)
  Receive Date: 20220816
  Receipt Date: 20220816
  Transmission Date: 20221027
  Serious: Yes (Hospitalization)
  Sender: FDA-Public Use
  Company Number: IL-ABBVIE-22K-082-4483293-00

PATIENT
  Sex: Female

DRUGS (3)
  1. RINVOQ [Suspect]
     Active Substance: UPADACITINIB
     Indication: Rheumatoid arthritis
     Route: 048
  2. RINVOQ [Suspect]
     Active Substance: UPADACITINIB
     Indication: Crohn^s disease
  3. RINVOQ [Suspect]
     Active Substance: UPADACITINIB
     Indication: Sacroiliitis

REACTIONS (4)
  - Diarrhoea [Unknown]
  - Bacterial test positive [Unknown]
  - Pyrexia [Unknown]
  - Product residue present [Unknown]
